FAERS Safety Report 5869301-4 (Version None)
Quarter: 2008Q3

REPORT INFORMATION
  Report Type: 
  Country: None (occurrence: None)
  Receive Date: 20080828
  Receipt Date: 20080807
  Transmission Date: 20090109
  Serious: Yes (Hospitalization)
  Sender: FDA-Public Use
  Company Number: 2008S1013129

PATIENT
  Sex: Male

DRUGS (18)
  1. RANITIDINE [Suspect]
     Indication: ANAESTHESIA
     Dosage: 50 MG; DAILY TRANSPLACENTAL
     Route: 064
  2. CLONAZEPAM [Suspect]
     Indication: DRUG USE FOR UNKNOWN INDICATION
     Dosage: 0.5 MG; OD TRANSPLACENTAL
     Route: 064
  3. LACTULOSE [Suspect]
     Indication: DRUG USE FOR UNKNOWN INDICATION
     Dosage: TRANSPLACENTAL
     Route: 064
  4. FOLIC ACID [Suspect]
     Indication: DRUG USE FOR UNKNOWN INDICATION
     Dosage: 500 UG; DAILY
  5. METOCLOPRAMIDE [Suspect]
     Indication: DRUG USE FOR UNKNOWN INDICATION
     Dosage: 10 MG; DAILY TRANSPLACENTAL
     Route: 064
  6. LITHIUM CARBONATE [Suspect]
     Indication: BIPOLAR DISORDER
     Dosage: 1.7 GM; DAILY TRANSPLACENTAL
     Route: 064
  7. LITHIUM CARBONATE [Suspect]
     Indication: POOR QUALITY SLEEP
     Dosage: 1.7 GM; DAILY TRANSPLACENTAL
     Route: 064
  8. FORANE [Suspect]
     Indication: DRUG USE FOR UNKNOWN INDICATION
     Dosage: TRANSPLACENTAL
     Route: 064
  9. RINGER'S [Suspect]
     Indication: DRUG USE FOR UNKNOWN INDICATION
     Dosage: 1 L; TRANSPLACENTAL
     Route: 064
  10. OLANZAPINE [Suspect]
     Indication: DRUG USE FOR UNKNOWN INDICATION
     Dosage: 20 MG; DAILY TRANSPLACENTAL
     Route: 064
  11. SODIUM CITRATE [Suspect]
     Indication: DRUG USE FOR UNKNOWN INDICATION
     Dosage: 30 ML; DAILY TRANSPLACENTAL
     Route: 064
  12. SUXAMETHONIUM (SUXAMETHONIUM) [Suspect]
     Indication: DRUG USE FOR UNKNOWN INDICATION
     Dosage: 100 MG; DAILY TRANSPLACENTAL
     Route: 064
  13. THIOPENTONE /00053401/ (THIOPENTAL) [Suspect]
     Indication: DRUG USE FOR UNKNOWN INDICATION
     Dosage: 250 MG; DAILY TRANSPLACENTAL
     Route: 064
  14. CALCIUM CHLORIDE [Suspect]
     Indication: DRUG USE FOR UNKNOWN INDICATION
     Dosage: 1 L; DAILY
  15. ISOFLURANE [Suspect]
     Indication: DRUG USE FOR UNKNOWN INDICATION
  16. POTASSIUM CHLORIDE [Suspect]
     Indication: DRUG USE FOR UNKNOWN INDICATION
     Dosage: 1 L; DAILY
  17. SODIUM CHLORIDE 0.9% [Suspect]
     Indication: DRUG USE FOR UNKNOWN INDICATION
     Dosage: 1 L; DAILY TRANSPLACENTAL
     Route: 064
  18. SODIUM LACTATE 1/6 MOLAR [Suspect]
     Indication: DRUG USE FOR UNKNOWN INDICATION
     Dosage: 1 L; DAILY

REACTIONS (3)
  - MATERNAL DRUGS AFFECTING FOETUS [None]
  - PREMATURE BABY [None]
  - THERAPEUTIC AGENT TOXICITY [None]
